FAERS Safety Report 4884212-9 (Version None)
Quarter: 2005Q4

REPORT INFORMATION
  Report Type: 
  Country: None (occurrence: None)
  Receive Date: 20051201
  Receipt Date: 20050903
  Transmission Date: 20060501
  Serious: No
  Sender: FDA-Public Use
  Company Number: 2005PV001815

PATIENT
  Age: 67 Year
  Sex: Female
  Weight: 102.5129 kg

DRUGS (5)
  1. BYETTA [Suspect]
     Indication: DIABETES MELLITUS NON-INSULIN-DEPENDENT
     Dosage: 5 MCG;BID;SC
     Route: 058
     Dates: start: 20050901
  2. METFORMIN [Concomitant]
  3. CARDIZEM [Concomitant]
  4. TRIAMTERENE AND HYDROCHLOROTHIAZIDE [Concomitant]
  5. LANTUS [Concomitant]

REACTIONS (3)
  - CHILLS [None]
  - TREMOR [None]
  - URINARY TRACT INFECTION [None]
